FAERS Safety Report 10032156 (Version 2)
Quarter: 2014Q2

REPORT INFORMATION
  Report Type: Spontaneous
  Country: None (occurrence: US)
  Receive Date: 20140324
  Receipt Date: 20140423
  Transmission Date: 20141212
  Serious: No
  Sender: FDA-Public Use
  Company Number: US-TEVA-470462USA

PATIENT
  Age: 52 Year
  Sex: Male

DRUGS (1)
  1. COPAXONE [Suspect]
     Indication: MULTIPLE SCLEROSIS

REACTIONS (4)
  - Extravasation [Recovered/Resolved]
  - Abscess [Recovered/Resolved]
  - Injection site extravasation [Recovered/Resolved]
  - Wrong technique in drug usage process [Unknown]
